FAERS Safety Report 4369719-5 (Version None)
Quarter: 2004Q2

REPORT INFORMATION
  Report Type: 
  Country: None (occurrence: None)
  Receive Date: 20040528
  Receipt Date: 20040517
  Transmission Date: 20050107
  Serious: Yes (Congenital Anomaly)
  Sender: FDA-Public Use
  Company Number: HQWYE954618MAY04

PATIENT
  Age: 0 Month
  Sex: Male
  Weight: 3.63 kg

DRUGS (4)
  1. EFFEXOR XR [Suspect]
     Indication: DEPRESSION
     Dosage: 150 MG 1X PER 1 DAY; ORAL
     Route: 048
  2. VITAMINS NOS (VITAMINS NOS) [Concomitant]
  3. SYNTHROID [Concomitant]
  4. PROMETRIUM [Concomitant]

REACTIONS (2)
  - DRUG EXPOSURE DURING PREGNANCY [None]
  - TALIPES [None]
